FAERS Safety Report 21706194 (Version 1)
Quarter: 2022Q4

REPORT INFORMATION
  Report Type: Spontaneous
  Country: US (occurrence: US)
  Receive Date: 20221209
  Receipt Date: 20221209
  Transmission Date: 20230113
  Serious: Yes (Other)
  Sender: FDA-Public Use
  Company Number: US-MYLANLABS-2022M1137091

PATIENT
  Age: 75 Year
  Sex: Male

DRUGS (5)
  1. PREDNISONE [Suspect]
     Active Substance: PREDNISONE
     Indication: Autoimmune encephalopathy
     Dosage: UNK (HIGH DOSE), INTRAVENOUS (NOT SPECIFIED)
     Route: 042
  2. PREDNISONE [Suspect]
     Active Substance: PREDNISONE
     Dosage: 20 MILLIGRAM, QD, INTRAVENOUS (NOT SPECIFIED)
     Route: 042
  3. USTEKINUMAB [Concomitant]
     Active Substance: USTEKINUMAB
     Indication: Autoimmune encephalopathy
     Dosage: UNK
     Route: 065
  4. BUDESONIDE [Concomitant]
     Active Substance: BUDESONIDE
     Indication: Autoimmune encephalopathy
     Dosage: 9 MILLIGRAM, QD
     Route: 048
  5. AZATHIOPRINE [Concomitant]
     Active Substance: AZATHIOPRINE
     Indication: Autoimmune encephalopathy
     Dosage: UNK (WITH ADEQUATE 6-THIOGUANINE LEVELS)
     Route: 048

REACTIONS (3)
  - Rebound effect [Recovered/Resolved]
  - Condition aggravated [Recovered/Resolved]
  - Autoimmune enteropathy [Recovered/Resolved]
